FAERS Safety Report 4297245-0 (Version None)
Quarter: 2004Q1

REPORT INFORMATION
  Report Type: 
  Country: None (occurrence: None)
  Receive Date: 20040213
  Receipt Date: 20040202
  Transmission Date: 20041129
  Serious: Yes (Hospitalization, Other)
  Sender: FDA-Public Use
  Company Number: 2004006783

PATIENT
  Age: 48 Year
  Sex: Male

DRUGS (13)
  1. NORVASC [Suspect]
     Indication: ILL-DEFINED DISORDER
     Dosage: 5 MG (DAILY)
  2. DILTIAZEM HYDROCHLORIDE [Suspect]
     Indication: HYPERTENSION
     Dosage: 120 MG (QID), ORAL
     Route: 048
     Dates: start: 19871201, end: 20031222
  3. HYDROCHLOROTHIAZIDE [Suspect]
     Indication: HYPERTENSION
     Dosage: 12.5 MG (DAILY)
  4. LISINOPRIL [Suspect]
     Indication: BLOOD PRESSURE
     Dosage: 20 MG (DAILY)
  5. ACETYLSALICYLIC ACID SRT [Concomitant]
  6. LORAZEPAM [Concomitant]
  7. DIPHENHYDRAMINE HCL [Concomitant]
  8. ATORVASTATIN CALCIUM [Concomitant]
  9. CLOPIDOGREL BISULFATE [Concomitant]
  10. EZETIMIBE (EZETIMIBE) [Concomitant]
  11. VITAMIN B COMPLEX CAP [Concomitant]
  12. AXOTAL (OLD FORM) (CAFFEINE, BUTALBITAL, PARACETAMOL) [Concomitant]
  13. PARACETAMOL (PARACETAMOL) [Concomitant]

REACTIONS (11)
  - ASTHENIA [None]
  - BLOOD PRESSURE INCREASED [None]
  - CHEST PAIN [None]
  - CONDITION AGGRAVATED [None]
  - CONSTIPATION [None]
  - CORONARY ARTERIAL STENT INSERTION [None]
  - DRUG INTERACTION [None]
  - DYSPNOEA [None]
  - HYPERTENSION [None]
  - MUSCLE DISORDER [None]
  - MYOCARDIAL INFARCTION [None]
